FAERS Safety Report 18136997 (Version 1)
Quarter: 2020Q3

REPORT INFORMATION
  Report Type: Report from Study
  Country: US (occurrence: US)
  Receive Date: 20200811
  Receipt Date: 20200811
  Transmission Date: 20201103
  Serious: Yes (Other)
  Sender: FDA-Public Use
  Company Number: US-ACTELION-A-US2020-206849

PATIENT
  Age: 71 Year
  Sex: Male

DRUGS (1)
  1. UPTRAVI [Suspect]
     Active Substance: SELEXIPAG
     Indication: PULMONARY ARTERIAL HYPERTENSION
     Dosage: 600 MCG, BID
     Route: 048
     Dates: start: 20200612

REACTIONS (11)
  - Dyspnoea [Unknown]
  - Productive cough [Unknown]
  - Abdominal discomfort [Recovered/Resolved]
  - Transfusion [Unknown]
  - Fatigue [Unknown]
  - Dyspnoea exertional [Unknown]
  - Haemoglobin decreased [Unknown]
  - Myalgia [Unknown]
  - Limb discomfort [Unknown]
  - Bendopnoea [Unknown]
  - Tremor [Unknown]

NARRATIVE: CASE EVENT DATE: 20200624
